FAERS Safety Report 8471764-5 (Version None)
Quarter: 2012Q2

REPORT INFORMATION
  Report Type: 
  Country: None (occurrence: None)
  Receive Date: 20120627
  Receipt Date: 20120619
  Transmission Date: 20120825
  Serious: Yes (Hospitalization)
  Sender: FDA-Public Use
  Company Number: JP-B.I. PHARMACEUTICALS,INC./RIDGEFIELD-2012-BP-09560NB

PATIENT
  Sex: Male
  Weight: 57.5 kg

DRUGS (7)
  1. CANDESARTAN CILEXETIL AND HYDROCHLOROTHIAZIDE [Concomitant]
     Indication: HYPERTENSION
     Route: 048
  2. PRADAXA [Suspect]
     Indication: ATRIAL FIBRILLATION
     Dosage: 300 MG
     Route: 048
     Dates: start: 20110329, end: 20120404
  3. URSO 250 [Concomitant]
     Dosage: 600 MG
     Route: 048
  4. DOXAZOSIN MESYLATE [Concomitant]
     Dosage: 2 MG
     Route: 048
  5. MUCOSTA [Concomitant]
     Dosage: 900 MG
     Route: 065
  6. ISOSORBIDE MONONITRATE [Concomitant]
     Indication: ANGINA PECTORIS
     Dosage: 20 MG
     Route: 048
  7. ALOSENN [Concomitant]
     Route: 048

REACTIONS (2)
  - EMBOLIC STROKE [None]
  - DRUG EFFECT DECREASED [None]
